FAERS Safety Report 25424003 (Version 1)
Quarter: 2025Q2

REPORT INFORMATION
  Report Type: Spontaneous
  Country: US (occurrence: US)
  Receive Date: 20250611
  Receipt Date: 20250611
  Transmission Date: 20250717
  Serious: No
  Sender: CHURCH & DWIGHT
  Company Number: US-CHURCH AND DWIGHT-2025-CDW-00766

PATIENT

DRUGS (1)
  1. ZICAM COLD REMEDY [Suspect]
     Active Substance: HOMEOPATHICS\ZINC ACETATE\ZINC GLUCONATE
     Indication: Product used for unknown indication
     Route: 048

REACTIONS (4)
  - Ageusia [Unknown]
  - Drug ineffective [Unknown]
  - Product use complaint [Unknown]
  - Product quality issue [Unknown]
